FAERS Safety Report 6641965-7 (Version None)
Quarter: 2010Q1

REPORT INFORMATION
  Report Type: 
  Country: None (occurrence: None)
  Receive Date: 20100319
  Receipt Date: 20100308
  Transmission Date: 20100710
  Serious: Yes (Death)
  Sender: FDA-Public Use
  Company Number: AU-JNJFOC-20100304266

PATIENT
  Age: 37 Year
  Sex: Male

DRUGS (6)
  1. TRAMADOL HYDROCHLORIDE [Suspect]
     Indication: DRUG USE FOR UNKNOWN INDICATION
  2. METHADONE [Concomitant]
     Route: 065
  3. CODEINE SULFATE [Concomitant]
     Route: 065
  4. DIAZEPAM [Concomitant]
     Route: 065
  5. NAPROXEN [Concomitant]
     Route: 065
  6. IBUPROFEN [Concomitant]
     Route: 065

REACTIONS (1)
  - DEATH [None]
